FAERS Safety Report 7449867-3 (Version None)
Quarter: 2011Q2

REPORT INFORMATION
  Report Type: 
  Country: None (occurrence: None)
  Receive Date: 20110421
  Receipt Date: 20110407
  Transmission Date: 20111010
  Serious: Yes (Hospitalization, Other)
  Sender: FDA-Public Use
  Company Number: DSJ-2011-01095

PATIENT
  Age: 72 Year
  Sex: Male

DRUGS (10)
  1. SITAGLIPTIN (SITAGLIPTIN) (SITAGLIPTIN) [Concomitant]
  2. PROPATYL NITRATE (PROPATYLNITRATE) (PROPATYLNITRATE) [Concomitant]
  3. INSULIN (INSULIN) (INSULIN) [Concomitant]
  4. ACETYLSALICYLIC ACID SRT [Concomitant]
  5. AMLODIPINE BESYLATE AND OLMESARTAN MEDOXOMIL [Suspect]
     Indication: HYPERTENSION
     Dosage: 20/5 MG (1 IN 1 D), PER ORAL; 40/10 MG (2 IN 1 D), PER ORAL; 40/5 MG (1 IN 1 D), PER ORAL
     Route: 048
     Dates: start: 20110101
  6. AMLODIPINE BESYLATE AND OLMESARTAN MEDOXOMIL [Suspect]
     Indication: HYPERTENSION
     Dosage: 20/5 MG (1 IN 1 D), PER ORAL; 40/10 MG (2 IN 1 D), PER ORAL; 40/5 MG (1 IN 1 D), PER ORAL
     Route: 048
     Dates: start: 20080101, end: 20110109
  7. AMLODIPINE BESYLATE AND OLMESARTAN MEDOXOMIL [Suspect]
     Indication: HYPERTENSION
     Dosage: 20/5 MG (1 IN 1 D), PER ORAL; 40/10 MG (2 IN 1 D), PER ORAL; 40/5 MG (1 IN 1 D), PER ORAL
     Route: 048
     Dates: start: 20110110, end: 20110101
  8. OMEGA 3 (EICOSAPENTAENOIC ACID, DOCOSAHEXANOIC ACID) (EICOSAPENTAENOIC [Concomitant]
  9. CONTRAST DYE (CONTRAST MEDIA) [Suspect]
     Indication: PRODUCT USED FOR UNKNOWN INDICATION
     Dates: start: 20100901, end: 20100901
  10. SIMVASTATIN [Concomitant]

REACTIONS (10)
  - DRUG INEFFECTIVE [None]
  - BLOOD PRESSURE SYSTOLIC INCREASED [None]
  - RENAL FAILURE [None]
  - CONSTIPATION [None]
  - WEIGHT DECREASED [None]
  - CAROTID ARTERIOSCLEROSIS [None]
  - CONTRAST MEDIA REACTION [None]
  - ARTERIOSCLEROSIS [None]
  - DIZZINESS [None]
  - INFARCTION [None]
